FAERS Safety Report 14403200 (Version 1)
Quarter: 2018Q1

REPORT INFORMATION
  Report Type: Spontaneous
  Country: ES (occurrence: ES)
  Receive Date: 20180117
  Receipt Date: 20180117
  Transmission Date: 20180509
  Serious: Yes (Life-Threatening)
  Sender: FDA-Public Use
  Company Number: ES-TEVA-2018-ES-843489

PATIENT
  Age: 72 Year
  Sex: Male

DRUGS (5)
  1. ENALAPRIL 20 [Suspect]
     Active Substance: ENALAPRIL
     Indication: HYPERTENSION
     Dosage: 20 MILLIGRAM DAILY; 1/2-0-1/2
     Route: 048
     Dates: start: 20120131, end: 20170108
  2. EUTIROX 50 MICROGRAMOS COMPRIMIDOS [Concomitant]
     Indication: HYPOTHYROIDISM
  3. SIMVASTATINA 20 [Concomitant]
     Indication: DYSLIPIDAEMIA
     Dosage: 0-0-1
     Route: 048
     Dates: start: 20120131
  4. ALOPURINOL 300 [Concomitant]
     Indication: HYPERURICAEMIA
     Dosage: 600 MILLIGRAM DAILY; 1-0-1
     Route: 048
     Dates: start: 20090101
  5. PARACETAMOL 1 GR [Concomitant]
     Active Substance: ACETAMINOPHEN
     Indication: PAIN
     Dosage: 3 GRAM DAILY; 1-1-1
     Route: 048

REACTIONS (1)
  - Cardio-respiratory arrest [Recovered/Resolved]

NARRATIVE: CASE EVENT DATE: 20170108
